FAERS Safety Report 13691422 (Version 1)
Quarter: 2017Q2

REPORT INFORMATION
  Report Type: Spontaneous
  Country: US (occurrence: US)
  Receive Date: 20170626
  Receipt Date: 20170626
  Transmission Date: 20170830
  Serious: No
  Sender: FDA-Public Use
  Company Number: US-ROCHE-1875747

PATIENT

DRUGS (1)
  1. TNKASE [Suspect]
     Active Substance: TENECTEPLASE
     Indication: PULMONARY EMBOLISM
     Route: 065

REACTIONS (2)
  - No adverse event [Unknown]
  - Incorrect dose administered [Unknown]
